FAERS Safety Report 8847340 (Version 3)
Quarter: 2012Q4

REPORT INFORMATION
  Report Type: 
  Country: FR (occurrence: FR)
  Receive Date: 20121018
  Receipt Date: 20121130
  Transmission Date: 20130627
  Serious: Yes (Hospitalization)
  Sender: FDA-Public Use
  Company Number: FR-ARROW-2012-03784

PATIENT
  Age: 50 Year
  Sex: Male

DRUGS (4)
  1. ACYCLOVIR (UNKNOWN) [Suspect]
     Indication: MENINGOENCEPHALITIS HERPETIC
     Dosage: 1 g q8h - diluted in 50 ml NS over 1 hr (12mg/ml)
     Route: 042
  2. AMOXICILLIN [Concomitant]
     Indication: PRODUCT USED FOR UNKNOWN INDICATION
     Dosage: 2 g, q8h
     Route: 065
  3. CEFOTAXIME [Concomitant]
     Indication: PRODUCT USED FOR UNKNOWN INDICATION
     Dosage: 1 g, q4h
     Route: 065
  4. PREDNISOLONE [Concomitant]
     Indication: PRODUCT USED FOR UNKNOWN INDICATION
     Dosage: 60 mg, daily starting day 2
     Route: 042

REACTIONS (1)
  - Dermatitis bullous [Not Recovered/Not Resolved]
